FAERS Safety Report 21051375 (Version 2)
Quarter: 2022Q4

REPORT INFORMATION
  Report Type: Report from Study
  Country: US (occurrence: US)
  Receive Date: 20220707
  Receipt Date: 20221017
  Transmission Date: 20230113
  Serious: Yes (Hospitalization)
  Sender: FDA-Public Use
  Company Number: US-INSMED, INC.-2022-00432-US

PATIENT
  Sex: Female

DRUGS (3)
  1. ARIKAYCE [Suspect]
     Active Substance: AMIKACIN
     Indication: Mycobacterial infection
     Dosage: 590 MILLIGRAM, TIW, ON MONDAY, WEDNESDAY AND FRIDAY
     Route: 055
     Dates: start: 20220211, end: 2022
  2. ARIKAYCE [Suspect]
     Active Substance: AMIKACIN
     Dosage: 590 MILLIGRAM, QD
     Route: 055
     Dates: start: 2022, end: 20220621
  3. ARIKAYCE [Suspect]
     Active Substance: AMIKACIN
     Dosage: 590 MILLIGRAM, QD
     Route: 055
     Dates: start: 2022

REACTIONS (9)
  - Hospitalisation [Unknown]
  - Abdominal discomfort [Not Recovered/Not Resolved]
  - Dysphonia [Recovered/Resolved]
  - Dysphonia [Unknown]
  - Nausea [Not Recovered/Not Resolved]
  - Dyspnoea [Recovered/Resolved]
  - Off label use [Unknown]
  - Therapy interrupted [Unknown]
  - Product dose omission issue [Unknown]

NARRATIVE: CASE EVENT DATE: 20220101
